FAERS Safety Report 7714516-3 (Version None)
Quarter: 2011Q3

REPORT INFORMATION
  Report Type: 
  Country: None (occurrence: None)
  Receive Date: 20110829
  Receipt Date: 20110818
  Transmission Date: 20111222
  Serious: Yes (Hospitalization, Other)
  Sender: FDA-Public Use
  Company Number: US-BAYER-2011-074777

PATIENT
  Age: 32 Year
  Sex: Female

DRUGS (1)
  1. YAZ [Suspect]
     Indication: HIDRADENITIS
     Dosage: DAILY DOSE 1 DF
     Dates: start: 20060901

REACTIONS (4)
  - APPENDICECTOMY [None]
  - VOMITING [None]
  - CHOLELITHIASIS [None]
  - NAUSEA [None]
